FAERS Safety Report 22088845 (Version 1)
Quarter: 2023Q1

REPORT INFORMATION
  Report Type: Spontaneous
  Country: US (occurrence: None)
  Receive Date: 20230310
  Receipt Date: 20230310
  Transmission Date: 20230418
  Serious: Yes (Life-Threatening, Hospitalization, Disabling, Other)
  Sender: FDA-Public Use
  Company Number: None

PATIENT
  Age: 52 Year
  Sex: Female
  Weight: 40.5 kg

DRUGS (3)
  1. CLONAZEPAM [Suspect]
     Active Substance: CLONAZEPAM
     Indication: Post-traumatic stress disorder
     Dosage: OTHER QUANTITY : 30 TABLET(S);?OTHER FREQUENCY : ^AS NEEDED^;?
     Route: 048
     Dates: start: 20220721, end: 20230309
  2. DIAZEPAM [Suspect]
     Active Substance: DIAZEPAM
  3. ZYPREXA [Concomitant]
     Active Substance: OLANZAPINE

REACTIONS (15)
  - Muscular weakness [None]
  - Insomnia [None]
  - Gastrointestinal disorder [None]
  - Agoraphobia [None]
  - Depersonalisation/derealisation disorder [None]
  - Nervous system disorder [None]
  - Mania [None]
  - Panic disorder [None]
  - Anxiety [None]
  - Haematemesis [None]
  - Palpitations [None]
  - Akathisia [None]
  - Toothache [None]
  - Insomnia [None]
  - Derealisation [None]

NARRATIVE: CASE EVENT DATE: 20220721
